FAERS Safety Report 23972564 (Version 2)
Quarter: 2024Q2

REPORT INFORMATION
  Report Type: Spontaneous
  Country: US (occurrence: US)
  Receive Date: 20240613
  Receipt Date: 20240621
  Transmission Date: 20240716
  Serious: No
  Sender: FDA-Public Use
  Company Number: US-SA-SAC20240610000481

PATIENT
  Age: 67 Year
  Sex: Female

DRUGS (3)
  1. DUPIXENT [Suspect]
     Active Substance: DUPILUMAB
     Indication: Eosinophilic oesophagitis
     Dosage: 300 MG, QW; DRUG TREATMENT DURATION:1 YEAR, 3 MONTHS
     Route: 058
     Dates: start: 20230217
  2. CLOBETASOL [Concomitant]
     Active Substance: CLOBETASOL
  3. MINOXIDIL [Concomitant]
     Active Substance: MINOXIDIL

REACTIONS (6)
  - Weight increased [Unknown]
  - Alopecia [Unknown]
  - Injection site swelling [Unknown]
  - Injection site pain [Unknown]
  - Injection site erythema [Unknown]
  - Therapeutic response unexpected [Unknown]

NARRATIVE: CASE EVENT DATE: 20240101
